FAERS Safety Report 8348379-2 (Version None)
Quarter: 2012Q2

REPORT INFORMATION
  Report Type: 
  Country: None (occurrence: None)
  Receive Date: 20120509
  Receipt Date: 20111103
  Transmission Date: 20120825
  Serious: Yes (Other)
  Sender: FDA-Public Use
  Company Number: US-ROCHE-GNE322387

PATIENT
  Sex: Female
  Weight: 102.15 kg

DRUGS (27)
  1. OMALIZUMAB [Suspect]
     Route: 058
     Dates: start: 20110607
  2. PROBIOTIC (UNK INGREDIENTS) [Concomitant]
     Indication: ASTHMA
  3. ZOFRAN [Concomitant]
     Indication: NAUSEA
     Dosage: UNK
  4. VITAMIN B-12 [Concomitant]
     Route: 048
     Dates: start: 20110923
  5. PULMICORT [Concomitant]
     Indication: ASTHMA
     Dosage: UNK
  6. PULMICORT NEBULIZER [Concomitant]
     Indication: ASTHMA
     Dosage: UNK
  7. XOPENEX [Concomitant]
     Indication: ASTHMA
     Dosage: UNK
     Dates: start: 20090101
  8. METHYLDOPA [Concomitant]
     Indication: HYPERTENSION
     Dosage: O
     Route: 048
     Dates: start: 20110601
  9. DOCUSATE SODIUM/SENNOSIDES [Concomitant]
     Indication: CONSTIPATION
     Route: 048
     Dates: start: 20100101
  10. ALVESCO [Concomitant]
     Indication: ASTHMA
  11. HYDROCHLOROTHIAZIDE [Concomitant]
     Indication: HYPERTENSION
  12. NYSTATIN [Concomitant]
     Route: 061
     Dates: start: 20110923
  13. OMALIZUMAB [Suspect]
     Route: 058
     Dates: start: 20110622
  14. OMALIZUMAB [Suspect]
     Route: 058
     Dates: start: 20110524
  15. SYMBICORT [Concomitant]
     Indication: ASTHMA
  16. OMALIZUMAB [Suspect]
     Indication: ASTHMA
     Route: 058
     Dates: start: 20110408
  17. ALBUTEROL [Concomitant]
     Indication: ASTHMA
     Dosage: UNK
  18. SINGULAIR [Concomitant]
     Indication: ASTHMA
     Dosage: UNK
     Route: 048
     Dates: start: 20090101
  19. VITAMIN D [Concomitant]
     Indication: ASTHMA
  20. CELEXA [Concomitant]
     Indication: DEPRESSION
  21. VITAMIN AND MINERAL PRENATAL SUPPLEMENT W/ FOLIC ACID CAP [Concomitant]
     Indication: PREGNANCY
     Dosage: UNK
  22. ACETAMINOPHEN [Concomitant]
     Indication: HEADACHE
     Route: 048
     Dates: start: 20110901
  23. OMALIZUMAB [Suspect]
     Route: 058
     Dates: start: 20110421
  24. FISH OIL [Concomitant]
     Indication: ASTHMA
  25. ZYRTEC [Concomitant]
     Indication: HYPERSENSITIVITY
     Route: 048
     Dates: start: 20090101
  26. PHENERGAN [Concomitant]
     Indication: NAUSEA
     Dosage: UNK
  27. OMALIZUMAB [Suspect]
     Route: 058
     Dates: start: 20110505

REACTIONS (3)
  - MATERNAL EXPOSURE DURING PREGNANCY [None]
  - ABORTION SPONTANEOUS [None]
  - VENTRICULAR EXTRASYSTOLES [None]
